FAERS Safety Report 6075395-6 (Version None)
Quarter: 2009Q1

REPORT INFORMATION
  Report Type: 
  Country: None (occurrence: None)
  Receive Date: 20090210
  Receipt Date: 20090210
  Transmission Date: 20090719
  Serious: Yes (Hospitalization)
  Sender: FDA-Public Use
  Company Number: None

PATIENT
  Age: 6 Year
  Sex: Female
  Weight: 26.7622 kg

DRUGS (1)
  1. SINGULAIR [Suspect]
     Dosage: 5 MG 1 A DAY PO
     Route: 048
     Dates: start: 20090120, end: 20090220

REACTIONS (4)
  - ABDOMINAL PAIN [None]
  - ABNORMAL BEHAVIOUR [None]
  - HEADACHE [None]
  - MOOD ALTERED [None]
